FAERS Safety Report 6545559-3 (Version None)
Quarter: 2010Q1

REPORT INFORMATION
  Report Type: 
  Country: None (occurrence: None)
  Receive Date: 20100119
  Receipt Date: 20100104
  Transmission Date: 20100710
  Serious: Yes (Other)
  Sender: FDA-Public Use
  Company Number: 003779

PATIENT
  Sex: Female
  Weight: 92.9 kg

DRUGS (6)
  1. LACOSAMIDE [Suspect]
     Indication: CONVULSION
     Dosage: (50 MG BID ORAL), (200 MG BID ORAL),50MG BID
     Route: 048
     Dates: start: 20091130
  2. LACOSAMIDE [Suspect]
     Indication: CONVULSION
     Dosage: (50 MG BID ORAL), (200 MG BID ORAL),50MG BID
     Route: 048
     Dates: start: 20091201
  3. KEPPRA [Suspect]
     Indication: CONVULSION
     Dosage: (1250 MG BID ORAL), (1250 MG BID ORAL)
     Route: 048
     Dates: start: 20030101
  4. KEPPRA [Suspect]
     Indication: CONVULSION
     Dosage: (1250 MG BID ORAL), (1250 MG BID ORAL)
     Route: 048
     Dates: start: 20090101
  5. TOPAMAX [Concomitant]
  6. ELMIRON [Concomitant]

REACTIONS (7)
  - ALOPECIA [None]
  - BLOOD PRESSURE INCREASED [None]
  - DRUG INEFFECTIVE [None]
  - FATIGUE [None]
  - NAUSEA [None]
  - PALPITATIONS [None]
  - TACHYCARDIA [None]
